FAERS Safety Report 6267142-X (Version None)
Quarter: 2009Q3

REPORT INFORMATION
  Report Type: 
  Country: None (occurrence: None)
  Receive Date: 20090714
  Receipt Date: 20090702
  Transmission Date: 20100115
  Serious: Yes (Hospitalization)
  Sender: FDA-Public Use
  Company Number: ES-WYE-G03976509

PATIENT
  Age: 87 Year
  Sex: Male

DRUGS (2)
  1. DOBUPAL RETARD [Suspect]
     Dosage: UNKNOWN
     Route: 048
     Dates: start: 20070101, end: 20081227
  2. RISPERDAL [Interacting]
     Dosage: UNKNOWN
     Route: 048
     Dates: start: 20070101, end: 20081227

REACTIONS (2)
  - DRUG INTERACTION [None]
  - PARKINSONISM [None]
